FAERS Safety Report 9336455 (Version 3)
Quarter: 2013Q3

REPORT INFORMATION
  Report Type: Report from Study
  Country: AU (occurrence: AU)
  Receive Date: 20130607
  Receipt Date: 20130719
  Transmission Date: 20140515
  Serious: Yes (Hospitalization)
  Sender: FDA-Public Use
  Company Number: AU-JNJFOC-20130503374

PATIENT
  Age: 72 Year
  Sex: Male
  Weight: 76.1 kg

DRUGS (5)
  1. ABIRATERONE ACETATE [Suspect]
     Route: 048
  2. ABIRATERONE ACETATE [Suspect]
     Indication: PROSTATE CANCER METASTATIC
     Route: 048
     Dates: start: 20120510
  3. PREDNISONE [Suspect]
     Indication: PROSTATE CANCER METASTATIC
     Route: 048
     Dates: start: 20120510
  4. FRUSEMIDE (FUROSEMIDE) [Concomitant]
     Indication: OEDEMA
     Route: 065
     Dates: start: 20120717
  5. LEUPROLIDE ACETATE [Concomitant]
     Indication: HORMONE THERAPY
     Route: 065
     Dates: start: 19970710

REACTIONS (1)
  - Ascites [Not Recovered/Not Resolved]
